FAERS Safety Report 9117192 (Version 1)
Quarter: 2013Q1

REPORT INFORMATION
  Report Type: Spontaneous
  Country: US (occurrence: US)
  Receive Date: 20130225
  Receipt Date: 20130225
  Transmission Date: 20140127
  Serious: Yes (Other)
  Sender: FDA-Public Use
  Company Number: US-ELI_LILLY_AND_COMPANY-US201302004412

PATIENT
  Sex: Female

DRUGS (2)
  1. CYMBALTA [Suspect]
     Indication: GENERALISED ANXIETY DISORDER
     Dosage: 40 MG, UNKNOWN
     Dates: start: 201210
  2. CYMBALTA [Suspect]
     Dosage: 20 MG, UNKNOWN

REACTIONS (8)
  - Syncope [Unknown]
  - Blister [Unknown]
  - Hypertension [Unknown]
  - Rash [Unknown]
  - Heart rate increased [Unknown]
  - Chest pain [Unknown]
  - Headache [Unknown]
  - Dyspnoea [Unknown]
